FAERS Safety Report 18985055 (Version 3)
Quarter: 2021Q2

REPORT INFORMATION
  Report Type: Spontaneous
  Country: TW (occurrence: TW)
  Receive Date: 20210309
  Receipt Date: 20210424
  Transmission Date: 20210717
  Serious: Yes (Hospitalization, Disabling, Other)
  Sender: FDA-Public Use
  Company Number: TW-MACLEODS PHARMACEUTICALS US LTD-MAC2021030393

PATIENT

DRUGS (7)
  1. FLUOXETINE [Concomitant]
     Active Substance: FLUOXETINE HYDROCHLORIDE
     Indication: OBESITY CARDIOMYOPATHY
     Dosage: UNK
     Route: 065
     Dates: start: 201803
  2. OXAZOLAM [Concomitant]
     Active Substance: OXAZOLAM
     Indication: OBESITY CARDIOMYOPATHY
     Dosage: UNK
     Route: 065
     Dates: start: 201803
  3. METFORMIN [Suspect]
     Active Substance: METFORMIN HYDROCHLORIDE
     Indication: OBESITY CARDIOMYOPATHY
     Dosage: UNK
     Route: 048
     Dates: start: 201803, end: 201807
  4. TRIIODOTHYRONINE [Suspect]
     Active Substance: LIOTHYRONINE SODIUM
     Indication: OBESITY CARDIOMYOPATHY
     Dosage: UNK
     Route: 065
     Dates: start: 201803
  5. TOPIRAMATE. [Suspect]
     Active Substance: TOPIRAMATE
     Indication: OBESITY CARDIOMYOPATHY
     Dosage: UNK
     Route: 048
     Dates: start: 201803, end: 201807
  6. PSEUDOEPHEDRINE. [Concomitant]
     Active Substance: PSEUDOEPHEDRINE HYDROCHLORIDE
     Indication: OBESITY CARDIOMYOPATHY
     Dosage: UNK
     Route: 065
     Dates: start: 201803
  7. HYDROCHLOROTHIAZIDE. [Concomitant]
     Active Substance: HYDROCHLOROTHIAZIDE
     Indication: OBESITY CARDIOMYOPATHY
     Dosage: UNK
     Route: 065
     Dates: start: 201803

REACTIONS (1)
  - Myopathy [Recovered/Resolved]

NARRATIVE: CASE EVENT DATE: 201807
